FAERS Safety Report 5230417-7 (Version None)
Quarter: 2007Q1

REPORT INFORMATION
  Report Type: 
  Country: None (occurrence: None)
  Receive Date: 20070206
  Receipt Date: 20070123
  Transmission Date: 20070707
  Serious: Yes (Hospitalization)
  Sender: FDA-Public Use
  Company Number: US-ELI_LILLY_AND_COMPANY-US200612002366

PATIENT
  Age: 70 Year
  Sex: Female
  Weight: 34.92 kg

DRUGS (8)
  1. FORTEO [Suspect]
     Indication: OSTEOPOROSIS
     Dosage: 20 UG, DAILY (1/D)
     Dates: start: 20040901
  2. FORTEO [Suspect]
     Dosage: 20 UG, DAILY (1/D)
  3. TOPROL-XL [Concomitant]
  4. COLACE [Concomitant]
  5. SEROQUEL [Concomitant]
  6. LIBRAX [Concomitant]
  7. ACIPHEX [Concomitant]
     Dosage: 20 MG, UNK
  8. CARAFATE [Concomitant]

REACTIONS (7)
  - BIPOLAR DISORDER [None]
  - CAPILLARY FRAGILITY [None]
  - DEFICIENCY ANAEMIA [None]
  - FALL [None]
  - INJECTION SITE HAEMORRHAGE [None]
  - MALNUTRITION [None]
  - NIGHT SWEATS [None]
